FAERS Safety Report 9460019 (Version 1)
Quarter: 2013Q3

REPORT INFORMATION
  Report Type: Spontaneous
  Country: FR (occurrence: FR)
  Receive Date: 20130815
  Receipt Date: 20130815
  Transmission Date: 20140515
  Serious: Yes (Other)
  Sender: FDA-Public Use
  Company Number: FR-ASTRAZENECA-2013SE62501

PATIENT
  Age: 20417 Day
  Sex: Female

DRUGS (36)
  1. INEXIUM [Suspect]
     Route: 048
     Dates: start: 20130621, end: 20130624
  2. PARACETAMOL [Suspect]
     Route: 042
     Dates: start: 20130712, end: 20130712
  3. PARACETAMOL [Suspect]
     Route: 042
     Dates: start: 20130717, end: 20130717
  4. LEXOMIL [Suspect]
     Route: 048
     Dates: start: 20130621, end: 20130707
  5. LEXOMIL ROCHE (NON-AZ PRODUCT) [Suspect]
     Route: 048
     Dates: start: 20130708, end: 20130719
  6. PIPERACILLINE TAZOBACTAM [Suspect]
     Route: 042
     Dates: start: 20130712, end: 20130722
  7. VENLAFAXINE [Suspect]
     Route: 048
     Dates: start: 20130622, end: 20130725
  8. VANCOMYCINE MYLAN (NON-AZ PRODUCT) [Suspect]
     Route: 042
     Dates: start: 20130718, end: 20130722
  9. KIDROLASE [Suspect]
     Dosage: 10600 UI, ON UNKNOWN FREQUENCY
     Route: 042
     Dates: start: 20130705, end: 20130723
  10. MEDNUTRIFLEX LIPIDE [Suspect]
     Route: 042
     Dates: start: 20130717, end: 20130724
  11. METHYLPREDNISOLONE MILAN [Suspect]
     Route: 042
     Dates: start: 20130621, end: 20130628
  12. UROMITEXAN [Suspect]
     Route: 042
     Dates: start: 20130628, end: 20130712
  13. VINCRISTINE [Suspect]
     Route: 042
     Dates: start: 20130628, end: 20130719
  14. ENDOXAN [Suspect]
     Route: 042
     Dates: start: 20130628, end: 20130712
  15. ACLOTINE [Suspect]
     Dosage: 3000 UI, ON UNKOWNN FREQUENCY
     Route: 042
     Dates: start: 20130705, end: 20130723
  16. CERUBIDINE [Suspect]
     Route: 042
     Dates: start: 20130628, end: 20130713
  17. GENTAMICINE PANPHARMA [Suspect]
     Route: 042
     Dates: start: 20130712, end: 20130712
  18. GENTAMICINE PANPHARMA [Suspect]
     Route: 042
     Dates: start: 20130713, end: 20130714
  19. TRANXENE [Suspect]
     Route: 042
     Dates: start: 20130621, end: 20130707
  20. ZOPICLONE ARROW [Suspect]
     Route: 048
     Dates: start: 20130723, end: 20130725
  21. FASTURTEC [Suspect]
     Route: 042
     Dates: start: 20130621, end: 20130627
  22. ZYLORIC [Suspect]
     Route: 048
     Dates: start: 20130627, end: 20130701
  23. ZOPHREN [Suspect]
     Route: 042
     Dates: start: 20130628, end: 20130725
  24. DUPHALAC [Suspect]
     Route: 048
     Dates: start: 20130629, end: 20130629
  25. MOVICOL [Suspect]
     Route: 048
     Dates: start: 20130701, end: 20130701
  26. FUROSEMIDE RENAUDIN [Suspect]
     Route: 042
     Dates: start: 20130701, end: 20130701
  27. FUROSEMIDE RENAUDIN [Suspect]
     Route: 042
     Dates: start: 20130705, end: 20130705
  28. FUROSEMIDE RENAUDIN [Suspect]
     Route: 042
     Dates: start: 20130719, end: 20130719
  29. GAVISCON [Suspect]
     Route: 048
     Dates: start: 20130712, end: 20130712
  30. GRANOCYTE [Suspect]
     Dosage: 34 MILLION UNIT, ON UNKNOWN FREQUENCY
     Route: 058
     Dates: start: 20130717, end: 20130723
  31. VALACICLOVIR ARROW [Suspect]
     Route: 048
     Dates: start: 20130621, end: 20130624
  32. HEPARINE [Suspect]
     Dosage: 6000 UI, ON UNKNOWN FREQUENCY
     Route: 058
     Dates: start: 20130621, end: 20130624
  33. ACUPAN [Suspect]
     Route: 042
     Dates: start: 20130621, end: 20130625
  34. LEDERFOLINE [Suspect]
     Route: 048
     Dates: start: 20130621, end: 20130725
  35. PRIMPERAN [Suspect]
     Route: 042
     Dates: start: 20130711, end: 20130725
  36. BACTRIM FORTE [Suspect]
     Route: 048
     Dates: start: 20130627, end: 20130712

REACTIONS (1)
  - Hypertriglyceridaemia [Recovered/Resolved]
